FAERS Safety Report 7565533-8 (Version None)
Quarter: 2011Q2

REPORT INFORMATION
  Report Type: 
  Country: None (occurrence: None)
  Receive Date: 20110623
  Receipt Date: 20100107
  Transmission Date: 20111010
  Serious: No
  Sender: FDA-Public Use
  Company Number: 2010BI000996

PATIENT
  Sex: Female

DRUGS (3)
  1. TYSABRI [Suspect]
     Route: 042
     Dates: start: 20090924
  2. TYSABRI [Suspect]
     Indication: MULTIPLE SCLEROSIS
     Route: 042
     Dates: start: 20050207, end: 20050208
  3. TYSABRI [Suspect]
     Route: 042
     Dates: start: 20070516, end: 20080404

REACTIONS (4)
  - COORDINATION ABNORMAL [None]
  - MUSCULOSKELETAL STIFFNESS [None]
  - ASTHENIA [None]
  - MUSCLE SPASMS [None]
